FAERS Safety Report 4808271-4 (Version None)
Quarter: 2005Q4

REPORT INFORMATION
  Report Type: 
  Country: None (occurrence: None)
  Receive Date: 20051021
  Receipt Date: 20011126
  Transmission Date: 20060501
  Serious: No
  Sender: FDA-Public Use
  Company Number: FR_011100403

PATIENT
  Age: 30 Year
  Sex: Female

DRUGS (2)
  1. ZYPREXA [Suspect]
     Indication: SCHIZOPHRENIA
     Dosage: 10 MG/DAY
     Dates: start: 20001101, end: 20011101
  2. TERALENE (ALIMEMAZINE TARTRATE) [Concomitant]

REACTIONS (1)
  - PURPURA [None]
